FAERS Safety Report 10577583 (Version 1)
Quarter: 2014Q4

REPORT INFORMATION
  Report Type: Spontaneous
  Country: DE (occurrence: DE)
  Receive Date: 20141111
  Receipt Date: 20141111
  Transmission Date: 20150529
  Serious: Yes (Hospitalization, Other)
  Sender: FDA-Public Use
  Company Number: DE-ASTRAZENECA-2014SE84162

PATIENT
  Age: 63 Year
  Sex: Female

DRUGS (16)
  1. SEROQUEL XR [Interacting]
     Active Substance: QUETIAPINE FUMARATE
     Route: 048
     Dates: start: 20130907, end: 20130910
  2. SIMVASTATIN. [Concomitant]
     Active Substance: SIMVASTATIN
     Route: 048
  3. TEGRETAL [Interacting]
     Active Substance: CARBAMAZEPINE
     Route: 048
     Dates: start: 20130903, end: 20130907
  4. SEROQUEL XR [Suspect]
     Active Substance: QUETIAPINE FUMARATE
     Route: 048
     Dates: end: 20130906
  5. SEROQUEL XR [Interacting]
     Active Substance: QUETIAPINE FUMARATE
     Route: 048
     Dates: start: 20130911, end: 20130929
  6. TEGRETAL [Interacting]
     Active Substance: CARBAMAZEPINE
     Route: 048
     Dates: end: 20130827
  7. TEGRETAL [Interacting]
     Active Substance: CARBAMAZEPINE
     Route: 048
     Dates: start: 20130930, end: 20131004
  8. RAMIPRIL. [Interacting]
     Active Substance: RAMIPRIL
     Route: 048
     Dates: end: 20131005
  9. TEGRETAL [Interacting]
     Active Substance: CARBAMAZEPINE
     Route: 048
     Dates: start: 20130915, end: 20130929
  10. HYDROCHLOROTHIAZID (NON AZ) [Interacting]
     Active Substance: HYDROCHLOROTHIAZIDE
     Route: 048
     Dates: end: 20131005
  11. CIPRALEX [Interacting]
     Active Substance: ESCITALOPRAM OXALATE
     Route: 048
     Dates: start: 20130912, end: 20131005
  12. VESIKUR [Concomitant]
     Active Substance: SOLIFENACIN SUCCINATE
     Route: 048
  13. SEROQUEL XR [Interacting]
     Active Substance: QUETIAPINE FUMARATE
     Route: 048
     Dates: start: 20130930, end: 20131005
  14. TEGRETAL [Interacting]
     Active Substance: CARBAMAZEPINE
     Route: 048
     Dates: start: 20130908, end: 20130914
  15. METOPROLOL [Concomitant]
     Active Substance: METOPROLOL
     Route: 048
  16. TEGRETAL [Interacting]
     Active Substance: CARBAMAZEPINE
     Route: 048
     Dates: start: 20130828, end: 20130902

REACTIONS (6)
  - Headache [None]
  - Drug interaction [Recovered/Resolved]
  - Vomiting [None]
  - Hyponatraemia [Recovered/Resolved]
  - Abdominal pain upper [None]
  - Hypotension [None]

NARRATIVE: CASE EVENT DATE: 20131005
